FAERS Safety Report 9173627 (Version 1)
Quarter: 2013Q1

REPORT INFORMATION
  Report Type: Spontaneous
  Country: SE (occurrence: None)
  Receive Date: 20130318
  Receipt Date: 20130318
  Transmission Date: 20140127
  Serious: Yes (Hospitalization)
  Sender: FDA-Public Use
  Company Number: LOSA20130003

PATIENT
  Age: 55 Year
  Sex: Female

DRUGS (3)
  1. LOSARTAN POTASSIUM [Suspect]
     Indication: HYPERTENSION
     Dosage: ONE DOSE
     Route: 048
  2. PREDNISOLONE [Concomitant]
  3. TAVEGYL [Concomitant]

REACTIONS (1)
  - Arteriospasm coronary [None]
